FAERS Safety Report 16118302 (Version 2)
Quarter: 2019Q2

REPORT INFORMATION
  Report Type: Report from Study
  Country: AR (occurrence: AR)
  Receive Date: 20190326
  Receipt Date: 20190412
  Transmission Date: 20190711
  Serious: Yes (Hospitalization)
  Sender: FDA-Public Use
  Company Number: AR-EMD SERONO-9079177

PATIENT
  Age: 14 Year
  Sex: Male

DRUGS (3)
  1. ZOLTENK [Concomitant]
     Indication: GASTRIC DISORDER
  2. LEVOTHYROXINE. [Concomitant]
     Active Substance: LEVOTHYROXINE
     Indication: PRODUCT USED FOR UNKNOWN INDICATION
  3. SAIZEN [Suspect]
     Active Substance: SOMATROPIN
     Indication: GROWTH HORMONE DEFICIENCY
     Route: 058
     Dates: start: 20170420, end: 201903

REACTIONS (1)
  - Cerebellar tumour [Recovered/Resolved]

NARRATIVE: CASE EVENT DATE: 201903
